FAERS Safety Report 21504911 (Version 1)
Quarter: 2022Q4

REPORT INFORMATION
  Report Type: Spontaneous
  Country: US (occurrence: None)
  Receive Date: 20221025
  Receipt Date: 20221025
  Transmission Date: 20230113
  Serious: Yes (Other)
  Sender: FDA-Public Use
  Company Number: 2022A350342

PATIENT
  Age: 34 Year
  Sex: Female
  Weight: 57.2 kg

DRUGS (12)
  1. EVUSHELD [Suspect]
     Active Substance: CILGAVIMAB\TIXAGEVIMAB
     Dosage: 300.0MG ONCE/SINGLE ADMINISTRATION
     Route: 030
     Dates: start: 20220927, end: 20220927
  2. TACROLIMUS [Concomitant]
     Active Substance: TACROLIMUS
  3. FLUCONAZOLE [Concomitant]
     Active Substance: FLUCONAZOLE
  4. BACTRIM [Concomitant]
     Active Substance: SULFAMETHOXAZOLE\TRIMETHOPRIM
  5. MESTRANOL\NORETHINDRONE [Concomitant]
     Active Substance: MESTRANOL\NORETHINDRONE
  6. PREDNISONE [Concomitant]
     Active Substance: PREDNISONE
  7. VALTREX [Concomitant]
     Active Substance: VALACYCLOVIR HYDROCHLORIDE
  8. VITAMIN D3 [Concomitant]
     Active Substance: CHOLECALCIFEROL
  9. ZOFRAN [Concomitant]
     Active Substance: ONDANSETRON HYDROCHLORIDE
  10. BUDESONIDE [Concomitant]
     Active Substance: BUDESONIDE
  11. SERTRALINE [Concomitant]
     Active Substance: SERTRALINE HYDROCHLORIDE
  12. PREVYMIS [Concomitant]
     Active Substance: LETERMOVIR

REACTIONS (2)
  - Deep vein thrombosis [Recovering/Resolving]
  - Injection site pain [Recovering/Resolving]

NARRATIVE: CASE EVENT DATE: 20220930
